FAERS Safety Report 6083897-1 (Version None)
Quarter: 2009Q1

REPORT INFORMATION
  Report Type: 
  Country: None (occurrence: None)
  Receive Date: 20090219
  Receipt Date: 20090216
  Transmission Date: 20090719
  Serious: Yes (Hospitalization)
  Sender: FDA-Public Use
  Company Number: FR-AVENTIS-200910758EU

PATIENT
  Age: 88 Year
  Sex: Female

DRUGS (5)
  1. FLUDEX                             /00340101/ [Suspect]
     Route: 048
     Dates: start: 20081110
  2. DEANXIT                            /00428501/ [Suspect]
     Route: 048
  3. BILOL [Suspect]
     Indication: ESSENTIAL HYPERTENSION
     Route: 048
  4. OMEZOL [Concomitant]
  5. OLFEN                              /00372301/ [Concomitant]

REACTIONS (2)
  - ATRIOVENTRICULAR BLOCK [None]
  - PRESYNCOPE [None]
